FAERS Safety Report 19389630 (Version 1)
Quarter: 2021Q2

REPORT INFORMATION
  Report Type: Spontaneous
  Country: JP (occurrence: JP)
  Receive Date: 20210608
  Receipt Date: 20210608
  Transmission Date: 20210717
  Serious: Yes (Other)
  Sender: FDA-Public Use
  Company Number: JP-SA-2021SA186817

PATIENT
  Age: 79 Year
  Sex: Male
  Weight: 67 kg

DRUGS (9)
  1. MIRABEGRON [Suspect]
     Active Substance: MIRABEGRON
     Indication: HYPERTONIC BLADDER
     Dosage: 25 MG, ONCE DAILY (BEFORE BEDTIME)
     Route: 048
     Dates: start: 20201015, end: 20201111
  2. MIRABEGRON [Suspect]
     Active Substance: MIRABEGRON
     Dosage: 25 MG, ONCE DAILY (BEFORE BEDTIME)
     Route: 048
     Dates: start: 20201217, end: 20210113
  3. LOSARTAN K [Concomitant]
     Active Substance: LOSARTAN POTASSIUM
     Dates: start: 20180511
  4. HACHIMIJIOGAN [Concomitant]
     Active Substance: HERBALS
     Dates: start: 20210208
  5. HARNAL [Suspect]
     Active Substance: TAMSULOSIN HYDROCHLORIDE
     Indication: HYPERTONIC BLADDER
     Dosage: 0.2 MG, ONCE DAILY (BEFORE BEDTIME); THERAPY DURATION: 1 MONTH 5 DAYS
     Route: 065
     Dates: start: 20201112, end: 20201216
  6. ZOLPIDEM TARTRATE. [Concomitant]
     Active Substance: ZOLPIDEM TARTRATE
     Dates: start: 20201015
  7. HARNAL [Suspect]
     Active Substance: TAMSULOSIN HYDROCHLORIDE
     Dosage: 0.2 MG, ONCE DAILY (BEFORE BEDTIME)
     Route: 048
     Dates: start: 20210114, end: 20210207
  8. BENIDIPINE HYDROCHLORIDE [Concomitant]
     Active Substance: BENIDIPINE HYDROCHLORIDE
     Dates: start: 20181025
  9. AMLODIPINE [AMLODIPINE BESILATE] [Concomitant]
     Active Substance: AMLODIPINE BESYLATE
     Dates: start: 20121108

REACTIONS (7)
  - Drug ineffective [Unknown]
  - Product use issue [Unknown]
  - Product use issue [Unknown]
  - Off label use [Unknown]
  - Anaphylactic shock [Recovered/Resolved]
  - Off label use [Unknown]
  - Product administration error [Unknown]

NARRATIVE: CASE EVENT DATE: 20201015
